FAERS Safety Report 24580749 (Version 3)
Quarter: 2024Q4

REPORT INFORMATION
  Report Type: Spontaneous
  Country: JP (occurrence: JP)
  Receive Date: 20241105
  Receipt Date: 20241204
  Transmission Date: 20250115
  Serious: Yes (Death)
  Sender: CARA THERAPEUTICS
  Company Number: JP-CARA THERAPEUTICS, INC.-2024-00476-JP

PATIENT
  Age: 50 Year
  Sex: Female

DRUGS (5)
  1. KORSUVA [Suspect]
     Active Substance: DIFELIKEFALIN ACETATE
     Indication: Pruritus
     Dosage: 25 ?G (25 ?G/   )
     Route: 042
     Dates: start: 20240701, end: 20240906
  2. PARSABIV [Concomitant]
     Active Substance: ETELCALCETIDE HYDROCHLORIDE
  3. MAXACALCITOL [Concomitant]
     Active Substance: MAXACALCITOL
  4. EPOETIN ALFA BS [Concomitant]
     Active Substance: ERYTHROPOIETIN
  5. IRON SUCROSE [Concomitant]
     Active Substance: IRON SUCROSE

REACTIONS (1)
  - Diabetes mellitus [Fatal]
